FAERS Safety Report 4330230-9 (Version None)
Quarter: 2004Q1

REPORT INFORMATION
  Report Type: 
  Country: None (occurrence: None)
  Receive Date: 20040329
  Receipt Date: 20040309
  Transmission Date: 20041129
  Serious: Yes (Other)
  Sender: FDA-Public Use
  Company Number: CL-SHR-04-022296

PATIENT
  Age: 29 Year
  Sex: Female
  Weight: 55 kg

DRUGS (1)
  1. YASMIN [Suspect]
     Indication: ORAL CONTRACEPTION
     Dosage: 1 TAB(S), 1 X/DAY, ORAL
     Route: 048
     Dates: start: 20031115, end: 20040101

REACTIONS (4)
  - ABORTION MISSED [None]
  - COMPLICATIONS OF MATERNAL EXPOSURE TO THERAPEUTIC DRUGS [None]
  - MATERNAL DRUGS AFFECTING FOETUS [None]
  - PREGNANCY ON ORAL CONTRACEPTIVE [None]
